FAERS Safety Report 5332626-5 (Version None)
Quarter: 2007Q2

REPORT INFORMATION
  Report Type: 
  Country: None (occurrence: None)
  Receive Date: 20070523
  Receipt Date: 20070511
  Transmission Date: 20071010
  Serious: Yes (Other)
  Sender: FDA-Public Use
  Company Number: US-PFIZER INC-2006024005

PATIENT
  Sex: Female
  Weight: 117.9 kg

DRUGS (3)
  1. DEPO-PROVERA SUSPENSION/INJ [Suspect]
     Indication: CONTRACEPTION
     Dosage: TEXT:UNKNOWN-FREQ:1ST INJECTION, UNKNOWN
     Route: 030
     Dates: start: 20040602, end: 20040602
  2. DEPO-PROVERA SUSPENSION/INJ [Suspect]
     Dosage: TEXT:UNKNOWN-FREQ:UNKNOWN
     Route: 030
     Dates: start: 20050815, end: 20050815
  3. DEPO-PROVERA SUSPENSION/INJ [Suspect]
     Dosage: TEXT:UNKNOWN-FREQ:LAST INJECTION
     Route: 030
     Dates: start: 20051025, end: 20051025

REACTIONS (4)
  - ABDOMINAL PAIN UPPER [None]
  - HEADACHE [None]
  - MIGRAINE [None]
  - WEIGHT INCREASED [None]
